FAERS Safety Report 6928708-4 (Version None)
Quarter: 2010Q3

REPORT INFORMATION
  Report Type: 
  Country: None (occurrence: None)
  Receive Date: 20100817
  Receipt Date: 20100813
  Transmission Date: 20110219
  Serious: Yes (Death)
  Sender: FDA-Public Use
  Company Number: A0876191A

PATIENT
  Sex: Male

DRUGS (2)
  1. PROMACTA [Suspect]
  2. CORTICOSTEROIDS [Concomitant]

REACTIONS (1)
  - DEATH [None]
